FAERS Safety Report 8234910-4 (Version None)
Quarter: 2012Q1

REPORT INFORMATION
  Report Type: 
  Country: None (occurrence: None)
  Receive Date: 20120326
  Receipt Date: 20120321
  Transmission Date: 20120608
  Serious: No
  Sender: FDA-Public Use
  Company Number: US-TEVA-329501USA

PATIENT
  Age: 27 Year
  Sex: Female
  Weight: 59.02 kg

DRUGS (2)
  1. MONISTAT [Suspect]
     Indication: FUNGAL INFECTION
     Dates: start: 20120316, end: 20120316
  2. PLAN B ONE-STEP [Suspect]
     Indication: POST COITAL CONTRACEPTION
     Dosage: 1.5 MILLIGRAM;
     Route: 048
     Dates: start: 20120224, end: 20120224

REACTIONS (5)
  - VULVOVAGINAL DRYNESS [None]
  - MENSTRUATION IRREGULAR [None]
  - FUNGAL INFECTION [None]
  - VULVOVAGINAL PRURITUS [None]
  - VAGINAL HAEMORRHAGE [None]
